FAERS Safety Report 24013513 (Version 6)
Quarter: 2025Q3

REPORT INFORMATION
  Report Type: Report from Study
  Country: US (occurrence: US)
  Receive Date: 20240626
  Receipt Date: 20250912
  Transmission Date: 20251021
  Serious: Yes (Other)
  Sender: TAKEDA
  Company Number: US-TAKEDA-2021TUS067548

PATIENT
  Age: 63 Year
  Sex: Male
  Weight: 125 kg

DRUGS (18)
  1. HUMAN IMMUNOGLOBULIN G [Suspect]
     Active Substance: HUMAN IMMUNOGLOBULIN G
     Indication: Chronic inflammatory demyelinating polyradiculoneuropathy
  2. HUMAN IMMUNOGLOBULIN G [Suspect]
     Active Substance: HUMAN IMMUNOGLOBULIN G
  3. HUMAN IMMUNOGLOBULIN G [Suspect]
     Active Substance: HUMAN IMMUNOGLOBULIN G
     Dosage: 60 GRAM, Q3WEEKS
  4. HUMAN IMMUNOGLOBULIN G [Suspect]
     Active Substance: HUMAN IMMUNOGLOBULIN G
     Dosage: 60 GRAM, Q4WEEKS
  5. HUMAN IMMUNOGLOBULIN G [Suspect]
     Active Substance: HUMAN IMMUNOGLOBULIN G
  6. ACETAMINOPHEN [Concomitant]
     Active Substance: ACETAMINOPHEN
  7. EPINEPHRINE [Concomitant]
     Active Substance: EPINEPHRINE
  8. TESTOSTERONE CYPIONATE [Concomitant]
     Active Substance: TESTOSTERONE CYPIONATE
  9. PANTOPRAZOLE SODIUM [Concomitant]
     Active Substance: PANTOPRAZOLE SODIUM
  10. SODIUM CHLORIDE [Concomitant]
     Active Substance: SODIUM CHLORIDE
  11. HEPARIN [Concomitant]
     Active Substance: HEPARIN SODIUM
  12. ALLOPURINOL [Concomitant]
     Active Substance: ALLOPURINOL
  13. ELIQUIS [Concomitant]
     Active Substance: APIXABAN
  14. LIDOCAINE [Concomitant]
     Active Substance: LIDOCAINE
  15. Omega [Concomitant]
  16. DIPHENHYDRAMINE HYDROCHLORIDE [Concomitant]
     Active Substance: DIPHENHYDRAMINE HYDROCHLORIDE
  17. METOPROLOL TARTRATE [Concomitant]
     Active Substance: METOPROLOL TARTRATE
  18. AMLODIPINE BESYLATE [Concomitant]
     Active Substance: AMLODIPINE BESYLATE

REACTIONS (10)
  - Nephrolithiasis [Unknown]
  - Skin abrasion [Unknown]
  - COVID-19 [Unknown]
  - Device issue [Unknown]
  - Off label use [Unknown]
  - Inappropriate schedule of product administration [Unknown]
  - Pain [Unknown]
  - Asthenia [Unknown]
  - Muscle spasms [Unknown]
  - Fatigue [Unknown]

NARRATIVE: CASE EVENT DATE: 20250908
